FAERS Safety Report 9235471 (Version 1)
Quarter: 2013Q1

REPORT INFORMATION
  Report Type: Spontaneous
  Country: US (occurrence: None)
  Receive Date: 20121031
  Receipt Date: 20121031
  Transmission Date: 20140127
  Serious: Yes (Other)
  Sender: FDA-Public Use
  Company Number: PHEH2012US016100

PATIENT
  Age: 47 Year
  Sex: Female
  Weight: 110.2 kg

DRUGS (15)
  1. GILENYA [Suspect]
     Indication: MULTIPLE SCLEROSIS
     Route: 048
     Dates: start: 20120412, end: 20120816
  2. LIORESAL (BACLOFEN) [Concomitant]
  3. WELLBUTRIN SR (BUPROPION) [Concomitant]
  4. DYAZIDE (HYDROCHLOROTHIAZIDE, TRIAMTERENE) [Concomitant]
  5. LYRICA (PREGABALIN) [Concomitant]
  6. PROVIGIL (MODAFINIL) [Concomitant]
  7. RELPAX (ELETRIPTAN HYDROBROMIDE) [Concomitant]
  8. FLAXSEED OIL (LINUM USITATISSIMUM SEED OIL) [Concomitant]
  9. CALCIUM ACETATE (CALCIUM ACETATE) [Concomitant]
  10. VITAMIN D3 (COLECALCIFEROL) [Concomitant]
  11. LEXAPRO (ESCITALOPRAM OXALATE) [Concomitant]
  12. MULTIVITAMIN (VITAMINS NOS) [Concomitant]
  13. OMEGA 3 (FISH OIL) [Concomitant]
  14. ZOCOR (SIMVASTATIN) [Concomitant]
  15. CYANOCOBALAMIN (CYANOCOBALAMIN) [Concomitant]

REACTIONS (3)
  - Alanine aminotransferase increased [None]
  - Aspartate aminotransferase increased [None]
  - Back pain [None]
